FAERS Safety Report 10410046 (Version 2)
Quarter: 2014Q4

REPORT INFORMATION
  Report Type: Spontaneous
  Country: DE (occurrence: DE)
  Receive Date: 20140826
  Receipt Date: 20141203
  Transmission Date: 20150528
  Serious: Yes (Life-Threatening, Hospitalization)
  Sender: FDA-Public Use
  Company Number: GXKR2014DE003254

PATIENT

DRUGS (5)
  1. CIMETIDINE [Concomitant]
     Active Substance: CIMETIDINE
     Indication: PREMEDICATION
     Route: 042
  2. ONDANSETRON [Concomitant]
     Active Substance: ONDANSETRON
     Indication: PREMEDICATION
     Route: 042
  3. NEOTAXAN [Suspect]
     Active Substance: PACLITAXEL
     Indication: CHEMOTHERAPY
  4. FENISTIL [Concomitant]
     Active Substance: DIMETHINDENE
     Indication: PREMEDICATION
     Route: 042
  5. FORTECORTIN [Concomitant]
     Active Substance: DEXAMETHASONE
     Indication: PREMEDICATION
     Route: 042

REACTIONS (5)
  - Hypersensitivity [Unknown]
  - Circulatory collapse [Unknown]
  - Loss of consciousness [Unknown]
  - Respiratory arrest [Unknown]
  - Pain [Unknown]

NARRATIVE: CASE EVENT DATE: 20140731
